FAERS Safety Report 18512510 (Version 1)
Quarter: 2020Q4

REPORT INFORMATION
  Report Type: Report from Study
  Country: FR (occurrence: FR)
  Receive Date: 20201117
  Receipt Date: 20201117
  Transmission Date: 20210114
  Serious: Yes (Death)
  Sender: FDA-Public Use
  Company Number: FR-PFIZER INC-2020446672

PATIENT

DRUGS (3)
  1. GEMCITABINE HYDROCHLORIDE. [Suspect]
     Active Substance: GEMCITABINE HYDROCHLORIDE
     Dosage: 1000 MG/M2, CYCLIC; OVER 30 MIN ON DAYS 1, 8, 15, 29, 36 AND 42 REST ON D 22 AND 49 (CYCLES 2 AND 3)
     Route: 042
  2. SORAFENIB [Suspect]
     Active Substance: SORAFENIB
     Indication: ADENOCARCINOMA PANCREAS
     Dosage: 400 MG, 2X/DAY
     Route: 048
  3. GEMCITABINE HYDROCHLORIDE. [Suspect]
     Active Substance: GEMCITABINE HYDROCHLORIDE
     Indication: ADENOCARCINOMA PANCREAS
     Dosage: 1000 MG/M2, CYCLIC; OVER 30 MIN ON DAYS 1, 8, 15, 22, 29, 36 AND 42, REST ON DAY 49 (CYCLE 1)
     Route: 042

REACTIONS (1)
  - Cerebrovascular accident [Fatal]
